FAERS Safety Report 5971906-7 (Version None)
Quarter: 2008Q4

REPORT INFORMATION
  Report Type: 
  Country: None (occurrence: None)
  Receive Date: 20081201
  Receipt Date: 20081121
  Transmission Date: 20090506
  Serious: Yes (Hospitalization)
  Sender: FDA-Public Use
  Company Number: US-BIOGENIDEC-2005BI016436

PATIENT
  Age: 49 Year
  Sex: Female

DRUGS (2)
  1. AVONEX [Suspect]
     Indication: MULTIPLE SCLEROSIS
     Route: 030
     Dates: start: 20000501, end: 20010430
  2. AVONEX [Suspect]
     Route: 030
     Dates: start: 20040712, end: 20081031

REACTIONS (2)
  - CONVULSION [None]
  - MYOCARDIAL INFARCTION [None]
